FAERS Safety Report 7756649-1 (Version None)
Quarter: 2011Q3

REPORT INFORMATION
  Report Type: 
  Country: None (occurrence: None)
  Receive Date: 20110915
  Receipt Date: 20110915
  Transmission Date: 20111222
  Serious: Yes (Other)
  Sender: FDA-Public Use
  Company Number: None

PATIENT
  Sex: Male
  Weight: 103.6 kg

DRUGS (2)
  1. ZONEGRAN [Suspect]
     Dosage: ONE QD PO
     Route: 048
     Dates: start: 20080814
  2. CONCERTA [Suspect]
     Dosage: TWO QAM PO
     Route: 048

REACTIONS (5)
  - PRODUCT SUBSTITUTION ISSUE [None]
  - STARING [None]
  - DRUG EFFECT DECREASED [None]
  - CONVULSION [None]
  - ADVERSE DRUG REACTION [None]
